FAERS Safety Report 7769464-X (Version None)
Quarter: 2011Q3

REPORT INFORMATION
  Report Type: 
  Country: None (occurrence: None)
  Receive Date: 20110922
  Receipt Date: 20110318
  Transmission Date: 20111222
  Serious: No
  Sender: FDA-Public Use
  Company Number: US-ASTRAZENECA-2011SE17464

PATIENT
  Age: 44 Year
  Sex: Female

DRUGS (11)
  1. NORANTON [Concomitant]
  2. SEROQUEL [Suspect]
     Indication: DEPRESSION
     Dosage: 50 TO 400 MG
     Route: 048
     Dates: start: 20020101
  3. WELLBUTRIN [Concomitant]
  4. PAXAL [Concomitant]
  5. ABILIFY [Concomitant]
  6. THORAZINE [Concomitant]
  7. ALPRAZOLAM [Concomitant]
  8. ZYPREXA [Concomitant]
  9. CITALOPRAM HYDROBROMIDE [Concomitant]
  10. GEODON [Concomitant]
  11. SEROQUEL [Suspect]
     Indication: BIPOLAR DISORDER
     Dosage: 50 TO 400 MG
     Route: 048
     Dates: start: 20020101

REACTIONS (4)
  - TYPE 2 DIABETES MELLITUS [None]
  - LIMB INJURY [None]
  - PNEUMONIA [None]
  - BRONCHITIS [None]
